FAERS Safety Report 6176281-3 (Version None)
Quarter: 2009Q2

REPORT INFORMATION
  Report Type: 
  Country: None (occurrence: None)
  Receive Date: 20090501
  Receipt Date: 20090423
  Transmission Date: 20091009
  Serious: Yes (Hospitalization)
  Sender: FDA-Public Use
  Company Number: B0572452A

PATIENT
  Age: 84 Year
  Sex: Female
  Weight: 54 kg

DRUGS (6)
  1. REQUIP [Suspect]
     Indication: PARKINSONISM
     Dosage: 2MG SEE DOSAGE TEXT
     Route: 048
     Dates: start: 20080401, end: 20080616
  2. PROLOPA [Concomitant]
     Indication: PARKINSONISM
     Route: 048
     Dates: start: 20070101
  3. SIPRALEXA [Concomitant]
     Indication: DEPRESSION
     Route: 048
     Dates: start: 20070101
  4. ZANTAC [Concomitant]
     Indication: DYSPEPSIA
     Route: 048
  5. ASPIRIN [Concomitant]
     Indication: HYPERTENSION
     Route: 048
     Dates: start: 20070101
  6. ALPRAZOLAM [Concomitant]
     Indication: ANXIETY
     Route: 048
     Dates: start: 20070101

REACTIONS (4)
  - CONVULSION [None]
  - FALL [None]
  - LOSS OF CONSCIOUSNESS [None]
  - SOMNOLENCE [None]
